FAERS Safety Report 5980329-6 (Version None)
Quarter: 2008Q4

REPORT INFORMATION
  Report Type: 
  Country: None (occurrence: None)
  Receive Date: 20081202
  Receipt Date: 20081202
  Transmission Date: 20090506
  Serious: No
  Sender: FDA-Public Use
  Company Number: None

PATIENT
  Sex: Female
  Weight: 62.1428 kg

DRUGS (2)
  1. MORPHINE SULFATE [Suspect]
     Indication: MIGRAINE
     Dosage: 1 TO 2 TABLETS UPP TO 4 TIMES DAIL PO  FIRST AND LAST PILL
     Route: 048
     Dates: start: 20081015, end: 20081015
  2. MORPHINE SULFATE [Suspect]
     Indication: PAIN
     Dosage: 1 TO 2 TABLETS UPP TO 4 TIMES DAIL PO  FIRST AND LAST PILL
     Route: 048
     Dates: start: 20081015, end: 20081015

REACTIONS (4)
  - HEART RATE ABNORMAL [None]
  - HYPERHIDROSIS [None]
  - LOSS OF CONSCIOUSNESS [None]
  - RESPIRATORY DEPRESSION [None]
